FAERS Safety Report 19784474 (Version 1)
Quarter: 2021Q3

REPORT INFORMATION
  Report Type: Spontaneous
  Country: CN (occurrence: CN)
  Receive Date: 20210903
  Receipt Date: 20210903
  Transmission Date: 20211014
  Serious: Yes (Life-Threatening, Hospitalization, Other)
  Sender: FDA-Public Use
  Company Number: CN-MACLEODS PHARMACEUTICALS US LTD-MAC2021032533

PATIENT

DRUGS (11)
  1. VECURONIUM [Suspect]
     Active Substance: VECURONIUM BROMIDE
     Dosage: UNK, 1 MG/KG/MINUTE
     Route: 042
  2. VECURONIUM [Suspect]
     Active Substance: VECURONIUM BROMIDE
     Indication: INDUCTION OF ANAESTHESIA
     Dosage: 50 MILLIGRAM
     Route: 065
  3. NIFEDIPINE. [Suspect]
     Active Substance: NIFEDIPINE
     Indication: HYPERTENSION
     Dosage: 30 MILLIGRAM, QD, SUSTAINED?RELEASE TABLETS
     Route: 065
  4. PROPOFOL. [Suspect]
     Active Substance: PROPOFOL
     Dosage: UNK, 4?6 MG/KG/HOUR
  5. SUFENTANIL [Suspect]
     Active Substance: SUFENTANIL
     Indication: INDUCTION OF ANAESTHESIA
     Dosage: 15 MILLIGRAM
     Route: 065
  6. REMIFENTANIL [Concomitant]
     Active Substance: REMIFENTANIL
     Indication: MAINTENANCE OF ANAESTHESIA
     Dosage: UNK, 8?15 MG/KG/HOUR
  7. PROPOFOL. [Suspect]
     Active Substance: PROPOFOL
     Indication: INDUCTION OF ANAESTHESIA
     Dosage: 150 MILLIGRAM (TWO INFUSIONS)
     Route: 065
  8. LOSARTAN POTASSIUM/HYDROCHLOROTHIAZIDE [Suspect]
     Active Substance: HYDROCHLOROTHIAZIDE\LOSARTAN POTASSIUM
     Indication: HYPERTENSION
     Dosage: 62.5 MILLIGRAM, QD
     Route: 065
  9. ACARBOSE. [Concomitant]
     Active Substance: ACARBOSE
     Indication: DIABETES MELLITUS
     Dosage: 50 MILLIGRAM, TID
     Route: 065
  10. INSULIN [Concomitant]
     Active Substance: INSULIN NOS
     Indication: DIABETES MELLITUS
     Dosage: UNK, QD
     Route: 058
  11. MIDAZOLAM. [Suspect]
     Active Substance: MIDAZOLAM
     Indication: INDUCTION OF ANAESTHESIA
     Dosage: 1 MILLIGRAM
     Route: 065

REACTIONS (4)
  - Ventricular extrasystoles [Recovered/Resolved]
  - Tachycardia [Recovered/Resolved]
  - Bradyarrhythmia [Recovered/Resolved]
  - Hypotension [Recovered/Resolved]
